FAERS Safety Report 8515385-4 (Version None)
Quarter: 2012Q3

REPORT INFORMATION
  Report Type: 
  Country: None (occurrence: None)
  Receive Date: 20120717
  Receipt Date: 20120712
  Transmission Date: 20120928
  Serious: Yes (Other)
  Sender: FDA-Public Use
  Company Number: US-BAYER-2012-041340

PATIENT
  Age: 27 Year
  Sex: Female
  Weight: 107 kg

DRUGS (1)
  1. MIRENA [Suspect]
     Indication: CONTRACEPTION
     Dosage: 20 MCG/24HR, CONT
     Route: 015
     Dates: start: 20110331

REACTIONS (3)
  - DEVICE DEPLOYMENT ISSUE [None]
  - GENITAL HAEMORRHAGE [None]
  - DEVICE DISLOCATION [None]
